FAERS Safety Report 8974067 (Version 1)
Quarter: 2012Q4

REPORT INFORMATION
  Report Type: 
  Country: US (occurrence: US)
  Receive Date: 20121218
  Receipt Date: 20121218
  Transmission Date: 20130627
  Serious: Yes (Hospitalization)
  Sender: FDA-Public Use
  Company Number: US-BAYER-2012-131973

PATIENT
  Age: 31 Year
  Sex: Female
  Weight: 58.96 kg

DRUGS (9)
  1. YASMIN [Suspect]
  2. SINGULAIR [Concomitant]
     Indication: EXACERBATION OF ASTHMA
  3. SINGULAIR [Concomitant]
     Indication: BRONCHITIS
  4. SOLUMEDROL [Concomitant]
  5. LEVAQUIN [Concomitant]
  6. ALBUTEROL [Concomitant]
  7. TYLENOL [Concomitant]
  8. PROTONIX [Concomitant]
  9. PREDNISONE [Concomitant]

REACTIONS (2)
  - Pulmonary embolism [None]
  - Deep vein thrombosis [None]
